FAERS Safety Report 18885372 (Version 1)
Quarter: 2021Q1

REPORT INFORMATION
  Report Type: Spontaneous
  Country: US (occurrence: US)
  Receive Date: 20210212
  Receipt Date: 20210212
  Transmission Date: 20210420
  Serious: No
  Sender: FDA-Public Use
  Company Number: None

PATIENT
  Age: 66 Year
  Sex: Male
  Weight: 78.75 kg

DRUGS (17)
  1. ABIRATERONE ACETATE. [Suspect]
     Active Substance: ABIRATERONE ACETATE
     Indication: PROSTATE CANCER
     Route: 048
     Dates: start: 20200923, end: 20210212
  2. VITAMIN D 10000U [Concomitant]
  3. FUROSEMIDE 20MG [Concomitant]
     Active Substance: FUROSEMIDE
  4. MORPHINE SULFATE ER 10MG [Concomitant]
  5. ATORVASTATIN 10MG [Concomitant]
     Active Substance: ATORVASTATIN
  6. CALCIUM 600MG [Concomitant]
  7. SYMBICORT 80?4.5 MCG/ACT [Concomitant]
  8. VESICARE 5MG [Concomitant]
     Active Substance: SOLIFENACIN SUCCINATE
  9. NILANDRON 150MG [Concomitant]
  10. ONDANSETRON 4MG [Concomitant]
     Active Substance: ONDANSETRON
  11. PREGABALIN 100MG [Concomitant]
     Active Substance: PREGABALIN
  12. DEXAMETHASONE 4MG [Concomitant]
     Active Substance: DEXAMETHASONE
  13. LEVOTHYROXINE 25MCG [Concomitant]
     Active Substance: LEVOTHYROXINE
  14. MONTELUKAST [Concomitant]
     Active Substance: MONTELUKAST SODIUM
  15. OXYCODONE 10MG [Concomitant]
     Active Substance: OXYCODONE
  16. PREDNISONE. [Suspect]
     Active Substance: PREDNISONE
     Indication: PROSTATE CANCER
     Route: 048
     Dates: start: 20200923, end: 20210212
  17. ZOLEDRONIC ACID 4MG/5ML [Concomitant]

REACTIONS (1)
  - Disease progression [None]

NARRATIVE: CASE EVENT DATE: 20210212
